FAERS Safety Report 14571094 (Version 2)
Quarter: 2018Q1

REPORT INFORMATION
  Report Type: Spontaneous
  Country: BR (occurrence: BR)
  Receive Date: 20180226
  Receipt Date: 20180320
  Transmission Date: 20180509
  Serious: Yes (Hospitalization, Other)
  Sender: FDA-Public Use
  Company Number: BR-ASTRAZENECA-2018SE21919

PATIENT
  Age: 838 Month
  Sex: Female
  Weight: 60 kg

DRUGS (7)
  1. VENALOT [Concomitant]
     Active Substance: COUMARIN\TROXERUTIN
     Indication: CARDIOVASCULAR DISORDER
  2. PANTOPRAZOLE [Concomitant]
     Active Substance: PANTOPRAZOLE
     Indication: GASTRITIS
  3. PURAN [Concomitant]
     Active Substance: LEVOTHYROXINE SODIUM
     Indication: HYPOTHYROIDISM
  4. TRIMEBUTINE [Concomitant]
     Active Substance: TRIMEBUTINE
     Indication: PROPHYLAXIS
  5. PANTOPRAZOLE [Concomitant]
     Active Substance: PANTOPRAZOLE
     Indication: OESOPHAGITIS
  6. ATACAND HCT [Suspect]
     Active Substance: CANDESARTAN CILEXETIL\HYDROCHLOROTHIAZIDE
     Indication: HYPERTENSION
     Dosage: 8/12,5MG, DAILY
     Route: 048
     Dates: start: 20070901, end: 20180216
  7. ATACAND HCT [Suspect]
     Active Substance: CANDESARTAN CILEXETIL\HYDROCHLOROTHIAZIDE
     Indication: HYPERTENSION
     Dosage: 16/12.5MG , DAILY
     Route: 048
     Dates: start: 20180217, end: 2018

REACTIONS (10)
  - Drug dispensing error [Recovered/Resolved]
  - Incorrect dose administered [Unknown]
  - Pathogen resistance [Unknown]
  - Escherichia urinary tract infection [Not Recovered/Not Resolved]
  - Sepsis [Recovered/Resolved]
  - Feeling hot [Recovered/Resolved]
  - Hyperglycaemia [Recovered/Resolved]
  - Fatigue [Not Recovered/Not Resolved]
  - Somnolence [Recovered/Resolved]
  - Hyperhidrosis [Recovered/Resolved]

NARRATIVE: CASE EVENT DATE: 201801
